FAERS Safety Report 9432130 (Version 1)
Quarter: 2013Q3

REPORT INFORMATION
  Report Type: Spontaneous
  Country: US (occurrence: US)
  Receive Date: 20130731
  Receipt Date: 20130731
  Transmission Date: 20140515
  Serious: No
  Sender: FDA-Public Use
  Company Number: US-PFIZER INC-2013222486

PATIENT
  Age: 35 Year
  Sex: Female
  Weight: 72.56 kg

DRUGS (2)
  1. PRISTIQ [Suspect]
     Indication: MOOD SWINGS
     Dosage: 50 MG, 1X/DAY
     Dates: start: 2012, end: 201307
  2. WELLBUTRIN [Suspect]
     Indication: MOOD SWINGS
     Dosage: UNK
     Dates: start: 201307

REACTIONS (2)
  - Drug withdrawal syndrome [Not Recovered/Not Resolved]
  - Dizziness [Not Recovered/Not Resolved]
